FAERS Safety Report 6248214-2 (Version None)
Quarter: 2009Q2

REPORT INFORMATION
  Report Type: 
  Country: None (occurrence: None)
  Receive Date: 20090629
  Receipt Date: 20090202
  Transmission Date: 20091009
  Serious: No
  Sender: FDA-Public Use
  Company Number: A0767510A

PATIENT
  Sex: Female

DRUGS (1)
  1. ALBUTEROL [Suspect]
     Indication: DRUG USE FOR UNKNOWN INDICATION
     Route: 055

REACTIONS (2)
  - PRODUCT QUALITY ISSUE [None]
  - UNEVALUABLE EVENT [None]
